FAERS Safety Report 11325916 (Version 1)
Quarter: 2015Q3

REPORT INFORMATION
  Report Type: Spontaneous
  Country: US (occurrence: US)
  Receive Date: 20150731
  Receipt Date: 20150731
  Transmission Date: 20151125
  Serious: No
  Sender: FDA-Public Use
  Company Number: US-ASTRAZENECA-2015SE71351

PATIENT
  Age: 44 Year
  Sex: Male

DRUGS (1)
  1. PRILOSEC OTC [Suspect]
     Active Substance: OMEPRAZOLE MAGNESIUM
     Indication: DYSPEPSIA
     Dosage: EVERY DAY,UNK, 1 ONLY
     Route: 048

REACTIONS (3)
  - Condition aggravated [Recovered/Resolved]
  - Dyspepsia [Recovered/Resolved]
  - Drug administration error [Unknown]
